FAERS Safety Report 4445968-2 (Version None)
Quarter: 2004Q3

REPORT INFORMATION
  Report Type: 
  Country: None (occurrence: None)
  Receive Date: 20040907
  Receipt Date: 20040823
  Transmission Date: 20050211
  Serious: Yes (Disabling)
  Sender: FDA-Public Use
  Company Number: 2004-BP-07106BR

PATIENT
  Age: 66 Year
  Sex: Female

DRUGS (2)
  1. SIFROL (PRAMIPEXOLE DIHYDROCHLORIDE) (TA) (PRAMIPEXOLE) [Suspect]
     Indication: PARKINSON'S DISEASE
     Dosage: 0.75 MG (0.25 MG, 3 TA OAD) PO ; 3 TA OAD
     Route: 048
     Dates: start: 20040501, end: 20040501
  2. AKINETON [Concomitant]

REACTIONS (2)
  - HYPOAESTHESIA [None]
  - HYPOAESTHESIA ORAL [None]
